FAERS Safety Report 22937673 (Version 2)
Quarter: 2023Q4

REPORT INFORMATION
  Report Type: Spontaneous
  Country: US (occurrence: US)
  Receive Date: 20230913
  Receipt Date: 20231219
  Transmission Date: 20240109
  Serious: Yes (Life-Threatening, Hospitalization, Other)
  Sender: FDA-Public Use
  Company Number: US-Y-MABS THERAPEUTICS, INC.-SPO2023-US-001384

PATIENT

DRUGS (6)
  1. DANYELZA [Suspect]
     Active Substance: NAXITAMAB-GQGK
     Indication: Neuroblastoma
     Dosage: CYCLE 1, DOSE 1
     Route: 042
  2. DANYELZA [Suspect]
     Active Substance: NAXITAMAB-GQGK
     Dosage: CYCLE 1, DOSE 2
     Route: 042
     Dates: start: 202305, end: 202305
  3. HYDROCORTISONE [Concomitant]
     Active Substance: HYDROCORTISONE
     Indication: Premedication
  4. BENADRYL [Concomitant]
     Active Substance: DIPHENHYDRAMINE HYDROCHLORIDE
     Indication: Premedication
  5. TYLENOL [Concomitant]
     Active Substance: ACETAMINOPHEN
     Indication: Premedication
  6. MORPHINE [Concomitant]
     Active Substance: MORPHINE
     Indication: Premedication

REACTIONS (2)
  - Cardiac arrest [Recovered/Resolved]
  - Pain [Unknown]

NARRATIVE: CASE EVENT DATE: 20230501
